FAERS Safety Report 26059205 (Version 1)
Quarter: 2025Q4

REPORT INFORMATION
  Report Type: Spontaneous
  Country: US (occurrence: None)
  Receive Date: 20251118
  Receipt Date: 20251118
  Transmission Date: 20260118
  Serious: Yes (Disabling)
  Sender: FDA-CTU
  Company Number: None

PATIENT
  Age: 23 Year
  Sex: Female
  Weight: 51.75 kg

DRUGS (13)
  1. ELOCON [Suspect]
     Active Substance: MOMETASONE FUROATE
     Indication: Rash
     Dates: start: 20231109, end: 20241129
  2. fish oils [Concomitant]
  3. one a day women^s multivitamins daily [Concomitant]
  4. ADVIL [Concomitant]
     Active Substance: IBUPROFEN
  5. ZYRTEC [Concomitant]
     Active Substance: CETIRIZINE HYDROCHLORIDE
  6. Kombucha and yogurt probiotics [Concomitant]
  7. PROBIOTICS NOS [Concomitant]
     Active Substance: PROBIOTICS NOS
  8. BERBERINE [Concomitant]
     Active Substance: BERBERINE
  9. NIZORAL [Concomitant]
     Active Substance: KETOCONAZOLE
  10. KETOCONAZOLE [Concomitant]
     Active Substance: KETOCONAZOLE
  11. NIFUROXAZIDE [Concomitant]
     Active Substance: NIFUROXAZIDE
  12. TYLENOL [Concomitant]
     Active Substance: ACETAMINOPHEN
  13. BENADRYL [Concomitant]
     Active Substance: DIPHENHYDRAMINE HYDROCHLORIDE

REACTIONS (20)
  - Rash [None]
  - Eyelid rash [None]
  - Rash [None]
  - Rash [None]
  - Rash [None]
  - Cheilitis [None]
  - Rash erythematous [None]
  - Skin exfoliation [None]
  - Pain [None]
  - Rash pruritic [None]
  - Insomnia [None]
  - Electric shock sensation [None]
  - Muscle spasms [None]
  - Skin discolouration [None]
  - Swelling face [None]
  - Breast discharge [None]
  - Heavy menstrual bleeding [None]
  - Scratch [None]
  - Abnormal loss of weight [None]
  - Diarrhoea infectious [None]

NARRATIVE: CASE EVENT DATE: 20231109
